FAERS Safety Report 24453693 (Version 2)
Quarter: 2024Q4

REPORT INFORMATION
  Report Type: Report from Study
  Country: US (occurrence: US)
  Receive Date: 20241017
  Receipt Date: 20241018
  Transmission Date: 20250114
  Serious: No
  Sender: ROCHE
  Company Number: US-ROCHE-3304498

PATIENT
  Age: 45 Year
  Sex: Female

DRUGS (4)
  1. RITUXAN [Suspect]
     Active Substance: RITUXIMAB
     Indication: Multiple sclerosis
     Dosage: EVERY 4 WEEKS 4-6 WEEKS 500 MG/50 ML DAY 1 AND DAY 15
     Route: 042
  2. OCREVUS [Suspect]
     Active Substance: OCRELIZUMAB
     Indication: Relapsing multiple sclerosis
     Dosage: DATE OF SERVICE: 09/JUN/2022
     Route: 042
  3. IODINE [Concomitant]
     Active Substance: IODINE
  4. PROPOFOL [Concomitant]
     Active Substance: PROPOFOL

REACTIONS (2)
  - Off label use [Unknown]
  - No adverse event [Unknown]
